FAERS Safety Report 6170924-6 (Version None)
Quarter: 2009Q2

REPORT INFORMATION
  Report Type: 
  Country: None (occurrence: None)
  Receive Date: 20090428
  Receipt Date: 20090428
  Transmission Date: 20091009
  Serious: No
  Sender: FDA-Public Use
  Company Number: None

PATIENT
  Age: 30 Year
  Sex: Male
  Weight: 102.0593 kg

DRUGS (2)
  1. CIPROFLOXACIN HCL [Suspect]
  2. DARVOCET [Suspect]

REACTIONS (3)
  - DRUG DISPENSING ERROR [None]
  - MEDICATION ERROR [None]
  - PRODUCT LABEL ON WRONG PRODUCT [None]
